FAERS Safety Report 17996711 (Version 2)
Quarter: 2020Q3

REPORT INFORMATION
  Report Type: Report from Study
  Country: JP (occurrence: JP)
  Receive Date: 20200708
  Receipt Date: 20200729
  Transmission Date: 20201103
  Serious: Yes (Hospitalization)
  Sender: FDA-Public Use
  Company Number: JP-JNJFOC-20120904418

PATIENT
  Age: 40 Year
  Sex: Male
  Weight: 90 kg

DRUGS (9)
  1. DECADRON [Concomitant]
     Active Substance: DEXAMETHASONE
     Route: 042
     Dates: start: 20120821, end: 20120821
  2. ALOXI [Concomitant]
     Active Substance: PALONOSETRON HYDROCHLORIDE
     Route: 042
     Dates: start: 20120821, end: 20120821
  3. TEPRENONE [Concomitant]
     Active Substance: TEPRENONE
     Route: 048
     Dates: start: 20120620
  4. LASIX [Concomitant]
     Active Substance: FUROSEMIDE
     Indication: PLEURAL EFFUSION
     Route: 048
     Dates: start: 20120824, end: 20120827
  5. PRIMPERAN [Concomitant]
     Active Substance: METOCLOPRAMIDE HYDROCHLORIDE
     Indication: NAUSEA
     Route: 048
     Dates: start: 20120901, end: 20120903
  6. TRABECTEDIN [Suspect]
     Active Substance: TRABECTEDIN
     Indication: MYXOID LIPOSARCOMA
     Dosage: INFUSED OVER 24 HOURS FIRST CYCLE
     Route: 042
     Dates: start: 20120821, end: 20120822
  7. TRABECTEDIN [Suspect]
     Active Substance: TRABECTEDIN
     Route: 042
     Dates: start: 20120927
  8. LOXONIN [Suspect]
     Active Substance: LOXOPROFEN SODIUM
     Indication: TUMOUR PAIN
     Route: 048
     Dates: start: 20120620
  9. NOVAMIN [Concomitant]
     Indication: NAUSEA
     Route: 048
     Dates: start: 20120901, end: 20120903

REACTIONS (2)
  - Tumour haemorrhage [Recovered/Resolved]
  - Anaemia [Recovered/Resolved]

NARRATIVE: CASE EVENT DATE: 20120906
